FAERS Safety Report 8829216 (Version 1)
Quarter: 2012Q4

REPORT INFORMATION
  Report Type: 
  Country: US (occurrence: US)
  Receive Date: 20121009
  Receipt Date: 20121009
  Transmission Date: 20130627
  Serious: Yes (Other)
  Sender: FDA-Public Use
  Company Number: US-AMGEN-USASP2012063082

PATIENT
  Age: 53 Year
  Sex: Male
  Weight: 79.37 kg

DRUGS (1)
  1. ENBREL [Suspect]
     Indication: PSORIATIC ARTHROPATHY
     Dosage: UNK UNK, qwk
     Dates: start: 2007, end: 201011

REACTIONS (2)
  - Prostate cancer [Not Recovered/Not Resolved]
  - Malaise [Unknown]
